FAERS Safety Report 12179482 (Version 2)
Quarter: 2016Q1

REPORT INFORMATION
  Report Type: Spontaneous
  Country: FR (occurrence: FR)
  Receive Date: 20160314
  Receipt Date: 20160330
  Transmission Date: 20160526
  Serious: Yes (Death, Other)
  Sender: FDA-Public Use
  Company Number: FR-NORTHSTAR HEALTHCARE HOLDINGS-FR-2016NSR001379

PATIENT

DRUGS (2)
  1. BACLOFEN. [Suspect]
     Active Substance: BACLOFEN
     Indication: ALCOHOLISM
     Dosage: 200 MG, SINGLE, 20 TABLETS
     Route: 048
     Dates: start: 20150131
  2. BACLOFEN. [Suspect]
     Active Substance: BACLOFEN
     Dosage: UNK

REACTIONS (11)
  - Completed suicide [Fatal]
  - Platelet dysfunction [Unknown]
  - Visceral congestion [Fatal]
  - Bloody discharge [Unknown]
  - Respiratory arrest [Unknown]
  - Toxicity to various agents [Fatal]
  - Intentional overdose [Fatal]
  - Pallor [Unknown]
  - Cardio-respiratory arrest [Unknown]
  - Gastric haemorrhage [Unknown]
  - Pulmonary congestion [Unknown]

NARRATIVE: CASE EVENT DATE: 20150131
